FAERS Safety Report 11265436 (Version 1)
Quarter: 2015Q3

REPORT INFORMATION
  Report Type: Spontaneous
  Country: US (occurrence: None)
  Receive Date: 20150710
  Receipt Date: 20150710
  Transmission Date: 20151125
  Serious: No
  Sender: FDA-Public Use
  Company Number: None

PATIENT
  Age: 9 Year
  Sex: Female
  Weight: 35.38 kg

DRUGS (3)
  1. MELATONIN GUMMIES [Concomitant]
  2. VYVANSE [Suspect]
     Active Substance: LISDEXAMFETAMINE DIMESYLATE
     Indication: ATTENTION DEFICIT/HYPERACTIVITY DISORDER
     Dosage: ONE CAPSULE
     Route: 048
     Dates: start: 20150613, end: 20150620
  3. SMARTY PANTS QUMMY VITAMINS [Concomitant]

REACTIONS (4)
  - Insomnia [None]
  - Self-injurious ideation [None]
  - Paranoia [None]
  - Depression [None]

NARRATIVE: CASE EVENT DATE: 20150613
